FAERS Safety Report 4286735-2 (Version None)
Quarter: 2004Q1

REPORT INFORMATION
  Report Type: 
  Country: None (occurrence: None)
  Receive Date: 20040206
  Receipt Date: 20030321
  Transmission Date: 20041129
  Serious: Yes (Other)
  Sender: FDA-Public Use
  Company Number: FR-GLAXOSMITHKLINE-B0295839A

PATIENT
  Age: 71 Year
  Sex: Female
  Weight: 85.7 kg

DRUGS (12)
  1. AVANDIA [Suspect]
     Indication: DIABETES MELLITUS NON-INSULIN-DEPENDENT
     Dosage: 8MG PER DAY
     Route: 048
     Dates: start: 20021120, end: 20031114
  2. ACTOS [Suspect]
     Indication: DIABETES MELLITUS NON-INSULIN-DEPENDENT
     Dosage: 30MG PER DAY
     Route: 048
     Dates: start: 20020608, end: 20021119
  3. CHRONADALATE [Suspect]
     Indication: HYPERTENSION
     Dosage: 30MG PER DAY
     Route: 048
     Dates: end: 20030310
  4. ZYLORIC [Concomitant]
     Indication: HYPERURICAEMIA
     Dosage: 300MG PER DAY
     Route: 048
  5. TAHOR [Concomitant]
     Indication: HYPERCHOLESTEROLAEMIA
     Dosage: 20MG PER DAY
     Route: 048
  6. METFORMIN HCL [Concomitant]
     Indication: DIABETES MELLITUS NON-INSULIN-DEPENDENT
     Dosage: 700MG THREE TIMES PER DAY
     Route: 048
  7. DIAMICRON [Concomitant]
     Indication: DIABETES MELLITUS NON-INSULIN-DEPENDENT
     Dosage: 90MG PER DAY
     Route: 048
  8. INSUMAN BASAL [Concomitant]
     Indication: DIABETES MELLITUS
     Dosage: 10IU PER DAY
     Route: 058
     Dates: end: 20030310
  9. ASPIRIN [Concomitant]
     Indication: PAIN PROPHYLAXIS
     Dosage: 160MG PER DAY
     Route: 048
  10. COVERSYL [Concomitant]
     Indication: HYPERTENSION
     Dosage: 2MG TWICE PER DAY
     Route: 048
  11. HEXAQUINE [Concomitant]
     Dosage: 1TAB PER DAY
     Route: 048
  12. LASILIX [Concomitant]
     Indication: HYPERTENSION
     Dosage: 40MG PER DAY
     Route: 048
     Dates: end: 20030310

REACTIONS (5)
  - DRUG INTERACTION [None]
  - DRUG INTERACTION POTENTIATION [None]
  - FLUID RETENTION [None]
  - GLYCOSYLATED HAEMOGLOBIN INCREASED [None]
  - WEIGHT INCREASED [None]
